FAERS Safety Report 9092840 (Version 2)
Quarter: 2013Q1

REPORT INFORMATION
  Report Type: Report from Study
  Country: CA (occurrence: CA)
  Receive Date: 20130201
  Receipt Date: 20130222
  Transmission Date: 20140127
  Serious: Yes (Hospitalization, Other)
  Sender: FDA-Public Use
  Company Number: CA-JNJFOC-20130112579

PATIENT
  Age: 69 Year
  Sex: Female
  Weight: 59 kg

DRUGS (16)
  1. REMICADE [Suspect]
     Indication: CROHN^S DISEASE
     Dosage: 2ND INFUSION
     Route: 042
     Dates: start: 20130121
  2. REMICADE [Suspect]
     Indication: CROHN^S DISEASE
     Dosage: WEEKS 0, 2, 6 THEN EVERY 8 WEEKS
     Route: 042
     Dates: start: 20121203
  3. IMODIUM [Concomitant]
     Route: 065
  4. UNKNOWN MEDICATION [Concomitant]
     Route: 065
  5. MAGNESIUM [Concomitant]
     Route: 065
  6. SYNTHROID [Concomitant]
     Route: 065
  7. CITALOPRAM [Concomitant]
     Route: 065
  8. RISPERIDONE [Concomitant]
     Route: 065
  9. VIT D [Concomitant]
     Route: 065
  10. CALCIUM [Concomitant]
     Route: 065
  11. MULTIVITAMINS [Concomitant]
     Route: 065
  12. COVERSYL [Concomitant]
     Route: 065
  13. VITAMIN B12 [Concomitant]
     Route: 065
  14. VITAMIN D [Concomitant]
     Route: 065
  15. CHAMPIX [Concomitant]
     Route: 065
  16. SPIRIVA [Concomitant]
     Route: 065

REACTIONS (8)
  - Hypotension [Not Recovered/Not Resolved]
  - Muscle tightness [Recovering/Resolving]
  - Pallor [Recovering/Resolving]
  - Vulval disorder [Unknown]
  - Fatigue [Not Recovered/Not Resolved]
  - Asthenia [Not Recovered/Not Resolved]
  - Infusion related reaction [Not Recovered/Not Resolved]
  - Gastrointestinal haemorrhage [Unknown]
